APPROVED DRUG PRODUCT: PROMETHAZINE HYDROCHLORIDE
Active Ingredient: PROMETHAZINE HYDROCHLORIDE
Strength: 12.5MG
Dosage Form/Route: SUPPOSITORY;RECTAL
Application: A040428 | Product #002 | TE Code: AB
Applicant: COSETTE PHARMACEUTICALS INC
Approved: Mar 31, 2003 | RLD: No | RS: No | Type: RX